FAERS Safety Report 4923524-7 (Version None)
Quarter: 2006Q1

REPORT INFORMATION
  Report Type: 
  Country: None (occurrence: None)
  Receive Date: 20060227
  Receipt Date: 20060222
  Transmission Date: 20060701
  Serious: Yes (Death, Congenital Anomaly)
  Sender: FDA-Public Use
  Company Number: 2006AC00314

PATIENT

DRUGS (1)
  1. LOSEC [Suspect]
     Route: 064
     Dates: start: 20050804

REACTIONS (4)
  - ANAL ATRESIA [None]
  - DRUG EXPOSURE DURING PREGNANCY [None]
  - OESOPHAGEAL ATRESIA [None]
  - TRACHEAL ATRESIA [None]
